FAERS Safety Report 5088819-8 (Version None)
Quarter: 2006Q3

REPORT INFORMATION
  Report Type: 
  Country: None (occurrence: None)
  Receive Date: 20060825
  Receipt Date: 20060720
  Transmission Date: 20061208
  Serious: Yes (Disabling)
  Sender: FDA-Public Use
  Company Number: DE-GLAXOSMITHKLINE-D0050400A

PATIENT
  Age: 53 Year
  Sex: Male
  Weight: 80 kg

DRUGS (6)
  1. QUILONUM RETARD [Suspect]
     Indication: SCHIZOAFFECTIVE DISORDER
     Dosage: 1012.5MG TWICE PER DAY
     Route: 048
     Dates: start: 20060613
  2. ERGENYL CHRONO [Concomitant]
     Indication: PROPHYLAXIS
     Dosage: 750MG TWICE PER DAY
     Route: 048
     Dates: start: 20031101
  3. STILNOX [Concomitant]
     Indication: SLEEP DISORDER
     Dosage: 10MG PER DAY
     Route: 048
     Dates: start: 20040501
  4. VENLAFAXINE HCL [Concomitant]
     Route: 065
  5. RISPERDAL [Concomitant]
     Indication: PROPHYLAXIS
     Dosage: 3MG PER DAY
     Route: 048
     Dates: start: 20031101
  6. LITHIUM CARBONATE [Concomitant]
     Indication: SCHIZOAFFECTIVE DISORDER
     Dosage: 400MG TWICE PER DAY
     Route: 048
     Dates: start: 19890101, end: 20050601

REACTIONS (2)
  - TOOTH DISORDER [None]
  - TOOTH LOSS [None]
